FAERS Safety Report 24322235 (Version 1)
Quarter: 2024Q3

REPORT INFORMATION
  Report Type: Report from Study
  Country: CA (occurrence: CA)
  Receive Date: 20240916
  Receipt Date: 20240916
  Transmission Date: 20241016
  Serious: Yes (Other)
  Sender: ROCHE
  Company Number: CA-002147023-NVSC2022CA216011

PATIENT
  Age: 39 Year
  Sex: Female

DRUGS (6)
  1. XOLAIR [Suspect]
     Active Substance: OMALIZUMAB
     Indication: Chronic spontaneous urticaria
     Dosage: 300 MG, EVERY 4 WEEKS
     Route: 050
     Dates: start: 20220901, end: 20220901
  2. MELATONIN [Concomitant]
     Active Substance: MELATONIN
     Indication: Product used for unknown indication
     Dosage: UNK (STRENGTH 2)
     Route: 050
  3. MODAFINIL [Concomitant]
     Active Substance: MODAFINIL
     Indication: Product used for unknown indication
     Dosage: UNK
     Route: 050
  4. MAGNESIUM [Concomitant]
     Active Substance: MAGNESIUM
     Indication: Product used for unknown indication
     Dosage: UNK
     Route: 050
  5. EPINEPHRINE [Concomitant]
     Active Substance: EPINEPHRINE
     Indication: Product used for unknown indication
     Dosage: UNK
     Route: 065
  6. MOMETASONE [Concomitant]
     Active Substance: MOMETASONE
     Indication: Product used for unknown indication
     Dosage: UNK (STRENGTH: 2)
     Route: 065

REACTIONS (4)
  - Anaphylactic reaction [Unknown]
  - Alopecia [Unknown]
  - Drug ineffective [Unknown]
  - Urticaria [Unknown]
